FAERS Safety Report 13094712 (Version 3)
Quarter: 2017Q1

REPORT INFORMATION
  Report Type: Spontaneous
  Country: SE (occurrence: SE)
  Receive Date: 20170106
  Receipt Date: 20170308
  Transmission Date: 20170428
  Serious: Yes (Other)
  Sender: FDA-Public Use
  Company Number: SE-009507513-1612SWE015243

PATIENT
  Age: 71 Year
  Sex: Male

DRUGS (2)
  1. PROPECIA [Suspect]
     Active Substance: FINASTERIDE
     Indication: ALOPECIA
     Dosage: 1 MG, QD
     Route: 048
     Dates: start: 1996
  2. PROPECIA [Suspect]
     Active Substance: FINASTERIDE
     Dosage: 1 MG, QD
     Route: 048

REACTIONS (3)
  - Prostatic specific antigen decreased [Unknown]
  - Drug administered to patient of inappropriate age [Unknown]
  - Thrombosis [Unknown]

NARRATIVE: CASE EVENT DATE: 1996
